FAERS Safety Report 9133653 (Version 1)
Quarter: 2013Q1

REPORT INFORMATION
  Report Type: Spontaneous
  Country: GB (occurrence: GB)
  Receive Date: 20130301
  Receipt Date: 20130301
  Transmission Date: 20140127
  Serious: Yes (Hospitalization, Other)
  Sender: FDA-Public Use
  Company Number: PHFR2005GB03589

PATIENT
  Age: 49 None
  Sex: Male
  Weight: 100.68 kg

DRUGS (5)
  1. CLOZARIL [Suspect]
     Indication: SCHIZOPHRENIA
     Dosage: 275 MG, QD
     Route: 048
     Dates: start: 19990414
  2. AMISULPRIDE [Concomitant]
     Indication: SCHIZOPHRENIA
     Dosage: 400 MG, QD
     Route: 048
     Dates: start: 200010
  3. ASPIRIN [Concomitant]
     Indication: ANTIPLATELET THERAPY
     Dosage: 75 MG, QD
     Route: 048
     Dates: start: 200407
  4. SIMVASTATIN [Concomitant]
     Indication: BLOOD CHOLESTEROL
     Dosage: 20 MG, QD
     Route: 048
     Dates: start: 20050413
  5. LAMICTAL ^GLAXO WELLCOME^ [Concomitant]
     Indication: CONVULSION
     Dosage: 200 MG, QD
     Route: 048
     Dates: start: 199909

REACTIONS (6)
  - Angiopathy [Recovering/Resolving]
  - Electrocardiogram abnormal [Recovering/Resolving]
  - Epilepsy [Recovering/Resolving]
  - Grand mal convulsion [Recovering/Resolving]
  - Petit mal epilepsy [Unknown]
  - Extrapyramidal disorder [Unknown]
